FAERS Safety Report 5073142-8 (Version None)
Quarter: 2006Q3

REPORT INFORMATION
  Report Type: 
  Country: None (occurrence: None)
  Receive Date: 20060711
  Receipt Date: 20060417
  Transmission Date: 20061208
  Serious: No
  Sender: FDA-Public Use
  Company Number: 2006S1000081

PATIENT
  Age: 60 Year
  Sex: Male
  Weight: 136 kg

DRUGS (17)
  1. CUBICIN [Suspect]
     Indication: STREPTOCOCCAL BACTERAEMIA
     Dosage: 540 MG;Q48H;IV
     Route: 042
  2. ACYCLOVIR [Concomitant]
  3. AMIODARONE [Concomitant]
  4. CLINDAMYCIN [Concomitant]
  5. DIGOXIN [Concomitant]
  6. FLUOXETINE [Concomitant]
  7. INSULIN [Concomitant]
  8. METOPROLOL TARTRATE [Concomitant]
  9. CEFTRIAXONE [Concomitant]
  10. PANTOPRAZOLE SODIUM [Concomitant]
  11. NITROGLYCERIN [Concomitant]
  12. GABAPENTIN [Concomitant]
  13. FUROSEMIDE [Concomitant]
  14. VALPROATE SODIUM [Concomitant]
  15. WARFARIN SODIUM [Concomitant]
  16. VITAMIN K [Concomitant]
  17. ASPIRIN [Concomitant]

REACTIONS (1)
  - PROTHROMBIN TIME PROLONGED [None]
